FAERS Safety Report 19320194 (Version 1)
Quarter: 2021Q2

REPORT INFORMATION
  Report Type: Report from Study
  Country: RS (occurrence: RS)
  Receive Date: 20210527
  Receipt Date: 20210527
  Transmission Date: 20210717
  Serious: Yes (Death, Other)
  Sender: FDA-Public Use
  Company Number: RS-SEATTLE GENETICS-2021SGN02935

PATIENT
  Age: 27 Year
  Sex: Female

DRUGS (1)
  1. BRENTUXIMAB VEDOTIN?MPI [Suspect]
     Active Substance: BRENTUXIMAB VEDOTIN
     Indication: HODGKIN^S DISEASE
     Dosage: 100 MILLIGRAM
     Route: 042
     Dates: start: 20200327, end: 20200610

REACTIONS (1)
  - Hodgkin^s disease [Fatal]

NARRATIVE: CASE EVENT DATE: 20200610
